FAERS Safety Report 8999387 (Version 1)
Quarter: 2013Q1

REPORT INFORMATION
  Report Type: Spontaneous
  Country: GB (occurrence: GB)
  Receive Date: 20130103
  Receipt Date: 20130103
  Transmission Date: 20140127
  Serious: Yes (Hospitalization, Disabling)
  Sender: FDA-Public Use
  Company Number: GB-MERCK-1212GBR011274

PATIENT
  Age: 59 Year
  Sex: Male
  Weight: 90 kg

DRUGS (12)
  1. DEXAMETHASONE SODIUM PHOSPHATE [Suspect]
     Indication: PLASMA CELL MYELOMA
     Dosage: 20 MG, UNK
     Route: 065
     Dates: start: 20121008, end: 20121029
  2. VELCADE [Suspect]
     Indication: PLASMA CELL MYELOMA
     Dosage: 2.6 MG, UNK
     Route: 042
     Dates: start: 20121008, end: 20121029
  3. ACYCLOVIR [Concomitant]
     Indication: PROPHYLAXIS
     Dosage: 400 MG, UNK
     Dates: start: 201202
  4. ALLOPURINOL [Concomitant]
     Indication: PROPHYLAXIS
     Dosage: 300 MG, UNK
     Dates: start: 201202
  5. BACLOFEN [Concomitant]
     Indication: BACK PAIN
     Dosage: 10 MG, UNK
  6. SULFAMETHOXAZOLE (+) TRIMETHOPRIM [Concomitant]
     Dosage: 960 MG, UNK
     Dates: start: 201202
  7. DULOXETINE HYDROCHLORIDE [Concomitant]
     Indication: DEPRESSION
     Dosage: 60 MG, UNK
  8. FLUCONAZOLE [Concomitant]
     Dosage: 50 MG, UNK
     Dates: start: 201202
  9. LANSOPRAZOLE [Concomitant]
     Dosage: 30 MG, UNK
     Dates: start: 201202
  10. TINZAPARIN SODIUM [Concomitant]
     Indication: PULMONARY EMBOLISM
     Dosage: UNK
     Dates: start: 201206
  11. VALPROIC ACID [Concomitant]
     Indication: DEPRESSION
     Dosage: 250 MG, UNK
  12. VALPROIC ACID [Concomitant]
     Dosage: 500 MG, UNK

REACTIONS (2)
  - Cardiomyopathy [Not Recovered/Not Resolved]
  - Drug ineffective [Unknown]
